FAERS Safety Report 5827952-7 (Version None)
Quarter: 2008Q3

REPORT INFORMATION
  Report Type: 
  Country: None (occurrence: None)
  Receive Date: 20080725
  Receipt Date: 20080715
  Transmission Date: 20090109
  Serious: Yes (Hospitalization, Other)
  Sender: FDA-Public Use
  Company Number: 2007BI022799

PATIENT
  Age: 44 Year
  Sex: Female

DRUGS (1)
  1. TYSABRI [Suspect]
     Indication: MULTIPLE SCLEROSIS
     Dosage: 300 MG;QM;IV
     Route: 042
     Dates: start: 20070517

REACTIONS (13)
  - BLOOD POTASSIUM DECREASED [None]
  - CHOLECYSTECTOMY [None]
  - COLLAPSE OF LUNG [None]
  - COMA [None]
  - CYST [None]
  - DRUG ABUSE [None]
  - DRUG SCREEN POSITIVE [None]
  - IMMUNE SYSTEM DISORDER [None]
  - INFECTION [None]
  - MEMORY IMPAIRMENT [None]
  - NEPHROLITHIASIS [None]
  - POST PROCEDURAL BILE LEAK [None]
  - POST PROCEDURAL COMPLICATION [None]
